FAERS Safety Report 16772635 (Version 1)
Quarter: 2019Q4

REPORT INFORMATION
  Report Type: Spontaneous
  Country: US (occurrence: US)
  Receive Date: 20190904
  Receipt Date: 20190904
  Transmission Date: 20200122
  Serious: Yes (Hospitalization)
  Sender: FDA-Public Use
  Company Number: None

PATIENT
  Age: 29 Year
  Sex: Female
  Weight: 54.43 kg

DRUGS (2)
  1. THE KIND PEN (USING GENERIC THC CARTRIDGE) [Suspect]
     Active Substance: .DELTA.8-TETRAHYDROCANNABINOL\DEVICE\HERBALS
     Indication: PRODUCT USED FOR UNKNOWN INDICATION
     Dates: start: 20190803, end: 20190829
  2. VIVITROL [Suspect]
     Active Substance: NALTREXONE
     Dates: start: 20190803

REACTIONS (3)
  - Fatigue [None]
  - Eosinophilic pneumonia [None]
  - Oropharyngeal pain [None]

NARRATIVE: CASE EVENT DATE: 20190831
